FAERS Safety Report 13341706 (Version 1)
Quarter: 2017Q1

REPORT INFORMATION
  Report Type: Spontaneous
  Country: US (occurrence: US)
  Receive Date: 20170316
  Receipt Date: 20170316
  Transmission Date: 20170428
  Serious: No
  Sender: FDA-Public Use
  Company Number: US-ROCHE-1820591

PATIENT
  Sex: Female

DRUGS (10)
  1. ALBUTEROL SULFATE. [Concomitant]
     Active Substance: ALBUTEROL SULFATE
     Dosage: 0.63 MG/ 3ML NABULAZER
     Route: 065
  2. ASPRIN [Concomitant]
     Active Substance: ASPIRIN
     Route: 048
  3. DICLOFENAC POTASSIUM. [Concomitant]
     Active Substance: DICLOFENAC POTASSIUM
     Route: 048
  4. SINGULAIR [Concomitant]
     Active Substance: MONTELUKAST SODIUM
     Route: 048
  5. MOVE FREE ULTRA [Concomitant]
     Dosage: 40 MG, 70MG, 3.3MG
     Route: 048
  6. ERIVEDGE [Suspect]
     Active Substance: VISMODEGIB
     Indication: BASAL CELL CARCINOMA
     Dosage: STARTED 3 WEEKS AGO, STOPPED LAST FRIDAY
     Route: 048
     Dates: start: 20160630, end: 20160822
  7. BENAZEPRIL [Concomitant]
     Active Substance: BENAZEPRIL HYDROCHLORIDE
     Route: 048
  8. GABAPENTIN. [Concomitant]
     Active Substance: GABAPENTIN
     Route: 048
  9. TRIAMTERENE AND HYDROCHLOROTHIAZIDE [Concomitant]
     Active Substance: HYDROCHLOROTHIAZIDE\TRIAMTERENE
     Dosage: 37.5/25 UNIT NOT REPORTED
     Route: 048
  10. FAMCICLOVIR. [Concomitant]
     Active Substance: FAMCICLOVIR
     Route: 048

REACTIONS (6)
  - Muscle spasms [Unknown]
  - Ageusia [Unknown]
  - Nausea [Unknown]
  - Decreased appetite [Unknown]
  - Arthralgia [Unknown]
  - Fatigue [Unknown]
